FAERS Safety Report 7658094-6 (Version None)
Quarter: 2011Q3

REPORT INFORMATION
  Report Type: 
  Country: None (occurrence: None)
  Receive Date: 20110802
  Receipt Date: 20110729
  Transmission Date: 20111222
  Serious: Yes (Life-Threatening, Hospitalization)
  Sender: FDA-Public Use
  Company Number: SP03857

PATIENT
  Age: 73 Year
  Sex: Female

DRUGS (1)
  1. OSMOPREP [Suspect]
     Indication: BOWEL PREPARATION
     Dosage: (32 TABLETS), ORAL
     Route: 048
     Dates: start: 20110126, end: 20110126

REACTIONS (4)
  - DEHYDRATION [None]
  - CLONUS [None]
  - VOMITING [None]
  - MUSCLE CONTRACTIONS INVOLUNTARY [None]
